FAERS Safety Report 9360176 (Version 2)
Quarter: 2016Q2

REPORT INFORMATION
  Report Type: Report from Study
  Country: US (occurrence: US)
  Receive Date: 20130621
  Receipt Date: 20160406
  Transmission Date: 20160815
  Serious: Yes (Other)
  Sender: FDA-Public Use
  Company Number: US-ROCHE-1239201

PATIENT
  Sex: Female

DRUGS (14)
  1. FUROSEMIDE. [Concomitant]
     Active Substance: FUROSEMIDE
  2. DIGOXIN. [Concomitant]
     Active Substance: DIGOXIN
  3. OCUGUARD [Concomitant]
     Active Substance: OCUGUARD
  4. TOPROL XL [Concomitant]
     Active Substance: METOPROLOL SUCCINATE
  5. LUCENTIS [Suspect]
     Active Substance: RANIBIZUMAB
     Route: 050
     Dates: end: 2012
  6. VITAMIN C [Concomitant]
     Active Substance: ASCORBIC ACID
  7. LEVOTHYROXINE. [Concomitant]
     Active Substance: LEVOTHYROXINE
  8. AMIODARONE [Concomitant]
     Active Substance: AMIODARONE
  9. FOLIC ACID. [Concomitant]
     Active Substance: FOLIC ACID
  10. ENALAPRIL [Concomitant]
     Active Substance: ENALAPRIL
  11. LUCENTIS [Suspect]
     Active Substance: RANIBIZUMAB
     Indication: MACULAR DEGENERATION
     Route: 050
     Dates: start: 2008
  12. FOSAMAX [Concomitant]
     Active Substance: ALENDRONATE SODIUM
  13. ZINC SULFATE [Concomitant]
     Active Substance: ZINC SULFATE\ZINC SULFATE ANHYDROUS
  14. WARFARIN [Concomitant]
     Active Substance: WARFARIN

REACTIONS (4)
  - Blindness [Not Recovered/Not Resolved]
  - Pain [Unknown]
  - Herpes zoster [Unknown]
  - Drug ineffective [Unknown]
